FAERS Safety Report 16311214 (Version 1)
Quarter: 2019Q2

REPORT INFORMATION
  Report Type: Spontaneous
  Country: BE (occurrence: BE)
  Receive Date: 20190514
  Receipt Date: 20190514
  Transmission Date: 20190711
  Serious: Yes (Other)
  Sender: FDA-Public Use
  Company Number: BE-FRESENIUS KABI-FK201905418

PATIENT
  Age: 21 Year
  Sex: Female

DRUGS (5)
  1. IMIPENEM (MANUFACTURER UNKNOWN) [Suspect]
     Active Substance: IMIPENEM
     Indication: SALVAGE THERAPY
     Dosage: UNKNOWN
     Route: 042
  2. AZITHROMYCIN ANHYDROUS. [Suspect]
     Active Substance: AZITHROMYCIN ANHYDROUS
     Indication: SALVAGE THERAPY
     Dosage: UNKNOWN
     Route: 048
  3. TIGECYCLINE (MANUFACTURER UNKNOWN) [Suspect]
     Active Substance: TIGECYCLINE
     Indication: SALVAGE THERAPY
     Dosage: UNKNOWN
     Route: 042
  4. BEDAQUILINE [Suspect]
     Active Substance: BEDAQUILINE
     Indication: SALVAGE THERAPY
     Dosage: UNKNOWN
     Route: 048
  5. CLOFAZIMINE [Suspect]
     Active Substance: CLOFAZIMINE
     Indication: SALVAGE THERAPY
     Dosage: UNKNOWN
     Route: 048

REACTIONS (4)
  - Nausea [Unknown]
  - Hepatotoxicity [Unknown]
  - Deafness [Unknown]
  - Vomiting [Unknown]
